FAERS Safety Report 9675795 (Version 4)
Quarter: 2013Q4

REPORT INFORMATION
  Report Type: Spontaneous
  Country: JP (occurrence: JP)
  Receive Date: 20131107
  Receipt Date: 20131209
  Transmission Date: 20140711
  Serious: Yes (Other)
  Sender: FDA-Public Use
  Company Number: JP-PFIZER INC-2013316800

PATIENT
  Age: 79 Year
  Sex: Male

DRUGS (6)
  1. LIPITOR [Suspect]
     Indication: DYSLIPIDAEMIA
     Dosage: 10 MG, 1X/DAY
     Route: 048
  2. SEIBULE [Concomitant]
     Dosage: UNK
  3. AMARYL [Concomitant]
     Dosage: UNK
  4. KLARICID [Concomitant]
     Dosage: UNK
     Route: 048
  5. PRELONE [Concomitant]
     Dosage: UNK
  6. THEOLONG [Concomitant]
     Dosage: UNK
     Route: 048

REACTIONS (1)
  - Bronchitis [Unknown]
